FAERS Safety Report 9638936 (Version 1)
Quarter: 2013Q4

REPORT INFORMATION
  Report Type: Spontaneous
  Country: None (occurrence: US)
  Receive Date: 20131022
  Receipt Date: 20131022
  Transmission Date: 20140711
  Serious: No
  Sender: FDA-Public Use
  Company Number: US-TARO-2012P1068467

PATIENT
  Age: 21 Year
  Sex: Female

DRUGS (1)
  1. CLOTRIMAZOLE TOPICAL CREAM USP 1% [Suspect]

REACTIONS (2)
  - Secretion discharge [Unknown]
  - Abdominal pain lower [Unknown]
